FAERS Safety Report 6566178-9 (Version None)
Quarter: 2010Q1

REPORT INFORMATION
  Report Type: 
  Country: None (occurrence: None)
  Receive Date: 20100127
  Receipt Date: 20100113
  Transmission Date: 20100710
  Serious: Yes (Other)
  Sender: FDA-Public Use
  Company Number: 003485

PATIENT
  Sex: Male
  Weight: 130.5 kg

DRUGS (6)
  1. CERTOLIZUMAB PEGOL [Suspect]
     Indication: CROHN'S DISEASE
     Dosage: SEE IMAGE
     Route: 058
     Dates: start: 20040909, end: 20041008
  2. CERTOLIZUMAB PEGOL [Suspect]
     Indication: CROHN'S DISEASE
     Dosage: SEE IMAGE
     Route: 058
     Dates: start: 20050330, end: 20091230
  3. IMURAN [Concomitant]
  4. METROGEL [Concomitant]
  5. CEPHALEXIN [Concomitant]
  6. HYDROCODONE [Concomitant]

REACTIONS (1)
  - LIP NEOPLASM MALIGNANT STAGE UNSPECIFIED [None]
